FAERS Safety Report 8086566-1 (Version None)
Quarter: 2012Q1

REPORT INFORMATION
  Report Type: 
  Country: None (occurrence: None)
  Receive Date: 20120128
  Receipt Date: 20110510
  Transmission Date: 20120608
  Serious: No
  Sender: FDA-Public Use
  Company Number: US-ABBOTT-11P-163-0725005-00

PATIENT
  Sex: Female
  Weight: 74.002 kg

DRUGS (9)
  1. MULTI-VITAMINS [Concomitant]
     Indication: PRODUCT USED FOR UNKNOWN INDICATION
     Dosage: PILL
     Route: 048
     Dates: start: 20090601, end: 20100118
  2. TAMIFLU [Concomitant]
     Indication: INFLUENZA
     Dosage: PILL
     Route: 048
     Dates: start: 20091020, end: 20091029
  3. PROMETHAZINE [Concomitant]
     Indication: NAUSEA
     Route: 048
     Dates: start: 20090420, end: 20100118
  4. CAFFEINE CITRATE [Concomitant]
     Indication: PRODUCT USED FOR UNKNOWN INDICATION
     Dosage: 3.5 TIMES A WEEK, TEA EVERY 2-3 DAYS
     Route: 048
     Dates: start: 20090420, end: 20100118
  5. HUMIRA [Suspect]
     Indication: CROHN'S DISEASE
     Route: 050
     Dates: start: 20090420, end: 20100118
  6. EXTRA STRENGTH TYLENOL [Concomitant]
     Indication: HEADACHE
     Route: 048
     Dates: start: 20090420, end: 20100118
  7. ZANTAC [Concomitant]
     Indication: GASTROOESOPHAGEAL REFLUX DISEASE
     Dosage: MAXIMUM STRENGTH
     Route: 048
     Dates: start: 20091202, end: 20100118
  8. FLU VACCINE [Concomitant]
     Indication: PRODUCT USED FOR UNKNOWN INDICATION
     Dates: start: 20091001, end: 20091001
  9. H1N1 INFLUENZA VACCINE-NOS [Concomitant]
     Indication: INFLUENZA IMMUNISATION
     Route: 050
     Dates: start: 20091117, end: 20091117

REACTIONS (1)
  - GASTROOESOPHAGEAL REFLUX DISEASE [None]
